FAERS Safety Report 5070938-3 (Version None)
Quarter: 2006Q3

REPORT INFORMATION
  Report Type: 
  Country: None (occurrence: None)
  Receive Date: 20060804
  Receipt Date: 20060725
  Transmission Date: 20061208
  Serious: Yes (Hospitalization)
  Sender: FDA-Public Use
  Company Number: GBWYE354425JUL06

PATIENT
  Sex: Female
  Weight: 84 kg

DRUGS (10)
  1. ENBREL [Suspect]
     Indication: RHEUMATOID ARTHRITIS
     Route: 058
     Dates: start: 20040615
  2. PREDNISOLONE [Concomitant]
     Dosage: UNKNOWN
  3. AMLODIPINE [Concomitant]
     Dosage: UNKNOWN
  4. LEVOTHYROXINE SODIUM [Concomitant]
     Dosage: UNKNOWN
  5. BENDROFLUMETHIAZIDE [Concomitant]
     Dosage: UNKNOWN
  6. FOLIC ACID [Concomitant]
     Dosage: UNKNOWN
  7. LOSEC [Concomitant]
     Dosage: UNKNOWN
  8. ACETAMINOPHEN [Concomitant]
     Dosage: UNKNOWN
  9. METHOTREXATE [Concomitant]
     Dosage: UNKNOWN
  10. ATORVASTATIN CALCIUM [Concomitant]
     Dosage: UNKNOWN

REACTIONS (2)
  - ARTHROPOD BITE [None]
  - CELLULITIS [None]
